FAERS Safety Report 21188266 (Version 1)
Quarter: 2022Q3

REPORT INFORMATION
  Report Type: Spontaneous
  Country: US (occurrence: US)
  Receive Date: 20220809
  Receipt Date: 20220809
  Transmission Date: 20221027
  Serious: No
  Sender: FDA-Public Use
  Company Number: US-BRISTOL-MYERS SQUIBB COMPANY-2022-086860

PATIENT
  Age: 85 Year
  Sex: Male
  Weight: 82 kg

DRUGS (5)
  1. REVLIMID [Suspect]
     Active Substance: LENALIDOMIDE
     Indication: Plasma cell myeloma
     Route: 048
     Dates: start: 20210728
  2. VITAMIN B COMPLEX PLUS [Concomitant]
     Indication: Product used for unknown indication
     Route: 065
  3. ACYCLOVIR STELLA [Concomitant]
     Indication: Product used for unknown indication
     Route: 065
  4. FURO [FUROSEMIDE] [Concomitant]
     Indication: Product used for unknown indication
     Route: 065
  5. CORVITOL [METOPROLOL] [Concomitant]
     Indication: Product used for unknown indication
     Route: 065

REACTIONS (1)
  - Rash [Unknown]
